FAERS Safety Report 4492821-4 (Version None)
Quarter: 2004Q4

REPORT INFORMATION
  Report Type: 
  Country: None (occurrence: None)
  Receive Date: 20041103
  Receipt Date: 20041025
  Transmission Date: 20050328
  Serious: Yes (Life-Threatening)
  Sender: FDA-Public Use
  Company Number: 2004GB02531

PATIENT
  Age: 63 Year
  Sex: Female
  Weight: 95 kg

DRUGS (2)
  1. CRESTOR [Suspect]
     Indication: HYPERLIPIDAEMIA
     Dosage: 10 MG PO
     Route: 048
     Dates: start: 20030521, end: 20040201
  2. METFORMIN HCL [Concomitant]

REACTIONS (1)
  - BREAST CANCER RECURRENT [None]
